FAERS Safety Report 4561777-8 (Version None)
Quarter: 2005Q1

REPORT INFORMATION
  Report Type: 
  Country: None (occurrence: None)
  Receive Date: 20050125
  Receipt Date: 20050112
  Transmission Date: 20050727
  Serious: Yes (Hospitalization, Disabling, Other)
  Sender: FDA-Public Use
  Company Number: 2004239806US

PATIENT
  Age: 76 Year
  Sex: Male
  Weight: 68.0396 kg

DRUGS (12)
  1. CELEBREX [Suspect]
     Indication: ARTHRITIS
     Dosage: 200 MG, ORAL
     Route: 048
     Dates: start: 19991227, end: 20041006
  2. OMEPRAZOLE [Concomitant]
  3. DILTIAZEM HYDROCHLORIDE [Concomitant]
  4. ALPRAZOLAM [Concomitant]
  5. PHENYTOIN SODIUM [Concomitant]
  6. CLOPIDOGREL BISULFATE [Concomitant]
  7. DONEPEZIL HCL [Concomitant]
  8. TOCOPHEROL (TOCOPHEROL) [Concomitant]
  9. ASCORBIC ACID [Concomitant]
  10. PHYTONADIONE [Concomitant]
  11. CALCIUM (CALCIUM) [Concomitant]
  12. MULTIVITAMINS (ASCORBIC ACID, ERGOCALCIFEROL, FOLIC ACID, NICOTINAMIDE [Concomitant]

REACTIONS (6)
  - CAROTID ARTERY DISEASE [None]
  - CEREBROVASCULAR ACCIDENT [None]
  - LEG AMPUTATION [None]
  - MUSCLE SPASMS [None]
  - PERIPHERAL VASCULAR DISORDER [None]
  - THROMBOCYTHAEMIA [None]
